FAERS Safety Report 8607250 (Version 4)
Quarter: 2013Q4

REPORT INFORMATION
  Report Type: Spontaneous
  Country: US (occurrence: US)
  Receive Date: 20120611
  Receipt Date: 20131129
  Transmission Date: 20140711
  Serious: Yes (Disabling, Other)
  Sender: FDA-Public Use
  Company Number: US-ASTRAZENECA-2012SE35830

PATIENT
  Age: 53 Year
  Sex: Male
  Weight: 136.1 kg

DRUGS (24)
  1. NEXIUM [Suspect]
     Indication: BARRETT^S OESOPHAGUS
     Dosage: 2-3 PILLS DAILY
     Route: 048
     Dates: start: 2010
  2. NEXIUM [Suspect]
     Indication: GASTROOESOPHAGEAL REFLUX DISEASE
     Dosage: 2-3 PILLS DAILY
     Route: 048
     Dates: start: 2010
  3. PRILOSEC/OMEPRAZOLE [Suspect]
     Indication: GASTROOESOPHAGEAL REFLUX DISEASE
     Route: 048
     Dates: start: 20101210
  4. PRILOSEC/OMEPRAZOLE [Suspect]
     Indication: GASTROOESOPHAGEAL REFLUX DISEASE
     Route: 048
     Dates: start: 20110608
  5. ASPIRIN EC [Concomitant]
     Indication: CARDIAC DISORDER
     Route: 048
     Dates: start: 1995
  6. ASPIRIN EC [Concomitant]
     Indication: CARDIAC DISORDER
     Route: 048
     Dates: start: 20110624
  7. VITAMIN E [Concomitant]
     Indication: ADVERSE DRUG REACTION
     Dosage: 1 CAPS ORAL EVERY EVENING FOR 30 DAYS
     Route: 048
     Dates: start: 20110629
  8. RANITIDINE [Concomitant]
     Indication: BLOOD PRESSURE ABNORMAL
  9. PREVACID [Concomitant]
  10. PRAVASTATIN [Concomitant]
     Indication: BLOOD CHOLESTEROL ABNORMAL
     Route: 048
     Dates: start: 20120904
  11. FUROSEMIDE [Concomitant]
     Indication: BLOOD CHOLESTEROL ABNORMAL
     Route: 048
     Dates: start: 20121012
  12. ACETAMINOPHEN [Concomitant]
     Route: 048
     Dates: start: 1995
  13. AMLODIPINE [Concomitant]
     Route: 048
     Dates: start: 20020520
  14. CITALOPRAM [Concomitant]
     Route: 048
     Dates: start: 2001
  15. ENALAPRIL MALEATE [Concomitant]
     Indication: BLOOD PRESSURE
     Route: 048
     Dates: start: 1994
  16. LEVOTHYROXINE [Concomitant]
     Indication: THYROID DISORDER
     Route: 048
     Dates: start: 1999
  17. METOPROLOL [Concomitant]
     Indication: BLOOD PRESSURE
     Route: 048
     Dates: start: 1994
  18. HYDROCHLOROTHIAZIDE [Concomitant]
     Indication: BLOOD PRESSURE
     Route: 048
     Dates: start: 1994
  19. HYDROCHLOROTHIAZIDE [Concomitant]
     Indication: BLOOD PRESSURE
     Route: 048
     Dates: start: 20110624
  20. NIASPAN [Concomitant]
     Indication: BLOOD CHOLESTEROL
     Route: 048
     Dates: start: 20110630
  21. NORTRIPTYLINE HYDROCHLORIDE [Concomitant]
     Indication: PAIN
     Route: 048
     Dates: start: 20110330
  22. NORTRIPTYLINE HYDROCHLORIDE [Concomitant]
     Indication: PAIN
     Route: 048
     Dates: start: 20110407
  23. NAPROXEN [Concomitant]
     Route: 048
     Dates: start: 20110608
  24. NITROSTAT [Concomitant]
     Indication: CHEST PAIN
     Route: 060
     Dates: start: 20110414

REACTIONS (10)
  - Neck injury [Unknown]
  - Transient ischaemic attack [Unknown]
  - Osteoporosis [Unknown]
  - Multiple fractures [Unknown]
  - Foot fracture [Unknown]
  - Diabetes mellitus [Unknown]
  - Angina pectoris [Unknown]
  - Arthritis [Unknown]
  - Hypothyroidism [Unknown]
  - Depression [Unknown]
